FAERS Safety Report 24640777 (Version 1)
Quarter: 2024Q4

REPORT INFORMATION
  Report Type: Spontaneous
  Country: PT (occurrence: None)
  Receive Date: 20241120
  Receipt Date: 20241120
  Transmission Date: 20250114
  Serious: Yes (Other)
  Sender: ALLEGIS PHARMACEUTICALS
  Company Number: PT-Allegis Pharmaceuticals, LLC-MAR202411-000116

PATIENT
  Age: 34 Year
  Sex: Female

DRUGS (1)
  1. HYDROCORTISONE ACETATE [Suspect]
     Active Substance: HYDROCORTISONE ACETATE
     Indication: Afterbirth pain
     Dosage: UNKNOWN
     Route: 042

REACTIONS (2)
  - Anaphylactic reaction [Unknown]
  - Product use in unapproved indication [Unknown]
